FAERS Safety Report 15623738 (Version 3)
Quarter: 2018Q4

REPORT INFORMATION
  Report Type: Spontaneous
  Country: GB (occurrence: GB)
  Receive Date: 20181115
  Receipt Date: 20181220
  Transmission Date: 20190205
  Serious: Yes (Other)
  Sender: FDA-Public Use
  Company Number: GB-009507513-1811GBR002137

PATIENT
  Age: 44 Year
  Sex: Female
  Weight: 118 kg

DRUGS (3)
  1. SOVALDI [Suspect]
     Active Substance: SOFOSBUVIR
     Indication: CHRONIC HEPATITIS C
     Dosage: 1 DOSAGE FORM, UNK
     Route: 048
     Dates: start: 20161123, end: 20170329
  2. DACLATASVIR. [Suspect]
     Active Substance: DACLATASVIR
     Indication: CHRONIC HEPATITIS C
     Dosage: 60 MILLIGRAM
     Route: 048
     Dates: start: 20161123, end: 20170329
  3. RIBAVIRIN. [Suspect]
     Active Substance: RIBAVIRIN
     Indication: CHRONIC HEPATITIS C
     Dosage: 600 GRAM, BID (ALSO REPORTED AS 1200 G, QD)
     Route: 048
     Dates: start: 20161123, end: 20170329

REACTIONS (4)
  - Hepatitis C [Not Recovered/Not Resolved]
  - Wrong technique in product usage process [Recovered/Resolved]
  - Product residue present [Recovered/Resolved]
  - Treatment failure [Not Recovered/Not Resolved]

NARRATIVE: CASE EVENT DATE: 2017
